FAERS Safety Report 17212188 (Version 1)
Quarter: 2019Q4

REPORT INFORMATION
  Report Type: Spontaneous
  Country: TR (occurrence: TR)
  Receive Date: 20191230
  Receipt Date: 20191230
  Transmission Date: 20200122
  Serious: Yes (Other)
  Sender: FDA-Public Use
  Company Number: TR-SA-2019SA357713

PATIENT
  Age: 28 Year
  Sex: Female

DRUGS (4)
  1. ISONIAZID. [Suspect]
     Active Substance: ISONIAZID
     Indication: CUTANEOUS TUBERCULOSIS
     Dosage: UNK
  2. ETHAMBUTOL [Suspect]
     Active Substance: ETHAMBUTOL HYDROCHLORIDE
     Indication: CUTANEOUS TUBERCULOSIS
     Dosage: UNK
  3. PYRAZINAMIDE. [Suspect]
     Active Substance: PYRAZINAMIDE
     Indication: CUTANEOUS TUBERCULOSIS
     Dosage: UNK
  4. RIFAMPICIN [Suspect]
     Active Substance: RIFAMPIN
     Indication: CUTANEOUS TUBERCULOSIS
     Dosage: UNK

REACTIONS (12)
  - Arthralgia [Recovering/Resolving]
  - Myalgia [Recovering/Resolving]
  - Serum sickness-like reaction [Recovering/Resolving]
  - Rash macular [Recovering/Resolving]
  - Pyrexia [Recovering/Resolving]
  - Leukocytosis [Recovering/Resolving]
  - Abdominal pain [Recovering/Resolving]
  - Urticaria [Recovering/Resolving]
  - Asthenia [Recovering/Resolving]
  - Skin plaque [Recovering/Resolving]
  - Generalised oedema [Recovering/Resolving]
  - Erythema [Recovering/Resolving]
